FAERS Safety Report 8812515 (Version 5)
Quarter: 2015Q1

REPORT INFORMATION
  Report Type: Spontaneous
  Country: US (occurrence: US)
  Receive Date: 20120927
  Receipt Date: 20150223
  Transmission Date: 20150721
  Serious: Yes (Hospitalization, Other)
  Sender: FDA-Public Use
  Company Number: US-MERCK-1209USA009460

PATIENT
  Sex: Female
  Weight: 67.12 kg

DRUGS (5)
  1. BONIVA [Suspect]
     Active Substance: IBANDRONATE SODIUM
     Indication: OSTEOPENIA
     Dosage: 150 MG, QM
     Route: 048
     Dates: start: 2003, end: 20100907
  2. CALCIUM (UNSPECIFIED) [Concomitant]
     Active Substance: CALCIUM
     Indication: OSTEOPENIA
     Dosage: 600-900 MG, QD
     Dates: start: 1980
  3. FOSAMAX [Suspect]
     Active Substance: ALENDRONATE SODIUM
     Indication: OSTEOPOROSIS
     Dosage: 40 MG, BIW
     Route: 048
     Dates: start: 20000822, end: 20010327
  4. FOSAMAX [Suspect]
     Active Substance: ALENDRONATE SODIUM
     Indication: OSTEOPENIA
     Dosage: 10 MG, QAM
     Route: 048
     Dates: start: 19951227, end: 20000822
  5. FOSAMAX [Suspect]
     Active Substance: ALENDRONATE SODIUM
     Dosage: 70 MG, UNK
     Route: 048
     Dates: start: 20010327

REACTIONS (40)
  - Cardiac operation [Unknown]
  - Temperature intolerance [Unknown]
  - Eczema [Unknown]
  - Low turnover osteopathy [Unknown]
  - Osteoarthritis [Unknown]
  - Femur fracture [Recovered/Resolved]
  - Hypothyroidism [Unknown]
  - Foot deformity [Unknown]
  - Hyperparathyroidism [Unknown]
  - Rash erythematous [Unknown]
  - Drug ineffective [Unknown]
  - Bursitis [Unknown]
  - Femur fracture [Unknown]
  - Cholecystectomy [Unknown]
  - Bunion operation [Unknown]
  - Foot deformity [Unknown]
  - Benign breast lump removal [Unknown]
  - Prescribed underdose [Unknown]
  - Urinary tract infection [Unknown]
  - Cataract operation [Unknown]
  - Muscle spasms [Unknown]
  - Gastrooesophageal reflux disease [Unknown]
  - Nausea [Unknown]
  - Migraine [Unknown]
  - Pathological fracture [Unknown]
  - Intramedullary rod insertion [Unknown]
  - Osteoarthritis [Unknown]
  - Musculoskeletal chest pain [Recovered/Resolved]
  - Bunion operation [Unknown]
  - Hyperlipidaemia [Unknown]
  - Haemorrhoids [Unknown]
  - Foot fracture [Recovered/Resolved]
  - Anaemia postoperative [Unknown]
  - Headache [Unknown]
  - Back pain [Recovered/Resolved]
  - Intramedullary rod insertion [Unknown]
  - Rhinitis [Unknown]
  - Uterine dilation and curettage [Unknown]
  - Hypertension [Unknown]
  - Treatment failure [Unknown]

NARRATIVE: CASE EVENT DATE: 1995
